FAERS Safety Report 16647186 (Version 2)
Quarter: 2019Q3

REPORT INFORMATION
  Report Type: Spontaneous
  Country: BR (occurrence: BR)
  Receive Date: 20190730
  Receipt Date: 20190823
  Transmission Date: 20191004
  Serious: Yes (Hospitalization)
  Sender: FDA-Public Use
  Company Number: BR-ABBVIE-19P-020-2868440-00

PATIENT
  Sex: Female
  Weight: 13 kg

DRUGS (1)
  1. KLARICID [Suspect]
     Active Substance: CLARITHROMYCIN
     Indication: SINUSITIS
     Dosage: 2.5 ML, ONCE IN 12 HOURS, STARTED AT NIGHT
     Route: 048
     Dates: start: 20190715, end: 201907

REACTIONS (14)
  - Abdominal wall wound [Unknown]
  - Dehydration [Unknown]
  - Hypoaesthesia oral [Unknown]
  - Hypophagia [Recovered/Resolved]
  - Speech disorder [Recovered/Resolved]
  - Crying [Unknown]
  - Thirst [Unknown]
  - Fluid intake reduced [Unknown]
  - Asthenia [Unknown]
  - Vomiting [Unknown]
  - Tongue injury [Unknown]
  - Nausea [Unknown]
  - Paraesthesia oral [Recovered/Resolved]
  - Product use complaint [Unknown]

NARRATIVE: CASE EVENT DATE: 20190717
